FAERS Safety Report 12854876 (Version 1)
Quarter: 2016Q4

REPORT INFORMATION
  Report Type: Spontaneous
  Country: US (occurrence: US)
  Receive Date: 20161017
  Receipt Date: 20161017
  Transmission Date: 20170207
  Serious: Yes (Other)
  Sender: FDA-Public Use
  Company Number: US-SHIRE-US201614208

PATIENT
  Age: 10 Year
  Sex: Male
  Weight: 57.6 kg

DRUGS (1)
  1. VYVANSE [Suspect]
     Active Substance: LISDEXAMFETAMINE DIMESYLATE
     Indication: ATTENTION DEFICIT/HYPERACTIVITY DISORDER
     Dosage: 30 MG, 1X/DAY:QD
     Route: 048
     Dates: start: 20161002, end: 20161003

REACTIONS (13)
  - Incoherent [Recovered/Resolved]
  - Fatigue [Recovered/Resolved]
  - Nausea [Recovered/Resolved]
  - Dry mouth [Recovered/Resolved]
  - Somnolence [Recovered/Resolved]
  - Confusional state [Recovered/Resolved]
  - Eructation [Recovered/Resolved]
  - Sleep disorder [Recovered/Resolved]
  - Decreased appetite [Recovered/Resolved]
  - Dyskinesia [Recovered/Resolved]
  - Initial insomnia [Recovered/Resolved]
  - Delirium [Recovered/Resolved]
  - Tardive dyskinesia [Recovered/Resolved]

NARRATIVE: CASE EVENT DATE: 20161002
